FAERS Safety Report 18101200 (Version 2)
Quarter: 2020Q4

REPORT INFORMATION
  Report Type: Spontaneous
  Country: BG (occurrence: BG)
  Receive Date: 20200801
  Receipt Date: 20201128
  Transmission Date: 20210113
  Serious: Yes (Other)
  Sender: FDA-Public Use
  Company Number: NVSC2020BG211220

PATIENT
  Age: 53 Year
  Sex: Female
  Weight: 54 kg

DRUGS (8)
  1. TRASTUZUMAB EMTANSINE [Suspect]
     Active Substance: ADO-TRASTUZUMAB EMTANSINE
     Indication: HER2 POSITIVE BREAST CANCER
     Dosage: 200 MG
     Route: 042
     Dates: start: 20180830, end: 201811
  2. LAPATINIB [Suspect]
     Active Substance: LAPATINIB
     Indication: HER2 POSITIVE BREAST CANCER
     Dosage: 1250 MG,QD
     Route: 048
     Dates: start: 20191125, end: 20191125
  3. XGEVA [Suspect]
     Active Substance: DENOSUMAB
     Indication: HER2 POSITIVE BREAST CANCER
     Dosage: 120 MG,Q4W
     Route: 058
     Dates: start: 20181219
  4. PERTUZUMAB. [Suspect]
     Active Substance: PERTUZUMAB
     Indication: HER2 POSITIVE BREAST CANCER
     Dosage: 840 MG,QD
     Route: 042
     Dates: start: 20170804, end: 20170804
  5. DOCETAXEL. [Suspect]
     Active Substance: DOCETAXEL
     Indication: HER2 POSITIVE BREAST CANCER
     Dosage: 75 MG/M2,Q3W (MOST DOSE PRIOR TO EVENT 19 DEC 2018)
     Route: 042
     Dates: start: 20170804, end: 201711
  6. CAPECITABINE. [Suspect]
     Active Substance: CAPECITABINE
     Indication: BREAST CANCER
     Dosage: 2000 MG,Q3W
     Route: 048
     Dates: start: 20190530, end: 20191125
  7. VINORELBINE [Suspect]
     Active Substance: VINORELBINE TARTRATE
     Indication: HER2 POSITIVE BREAST CANCER
     Dosage: 25 MG/M2,Q3W
     Route: 042
     Dates: start: 20200218
  8. TRASTUZUMAB. [Suspect]
     Active Substance: TRASTUZUMAB
     Indication: HER2 POSITIVE BREAST CANCER
     Dosage: 8 MG/KG,QD
     Route: 065
     Dates: start: 20170804, end: 20170804

REACTIONS (1)
  - Metastases to spine [Recovered/Resolved]

NARRATIVE: CASE EVENT DATE: 201912
